FAERS Safety Report 13716313 (Version 1)
Quarter: 2017Q3

REPORT INFORMATION
  Report Type: Spontaneous
  Country: FR (occurrence: FR)
  Receive Date: 20170705
  Receipt Date: 20170705
  Transmission Date: 20171127
  Serious: Yes (Hospitalization)
  Sender: FDA-Public Use
  Company Number: FR-ZYDUS-015662

PATIENT
  Age: 52 Year
  Sex: Female

DRUGS (2)
  1. TOPIRAMATE. [Suspect]
     Active Substance: TOPIRAMATE
     Indication: MIGRAINE PROPHYLAXIS
     Route: 065
  2. TOPIRAMATE. [Suspect]
     Active Substance: TOPIRAMATE
     Indication: MIGRAINE PROPHYLAXIS
     Route: 065
     Dates: start: 2011

REACTIONS (4)
  - Skin fissures [Recovering/Resolving]
  - Skin erosion [Recovering/Resolving]
  - Condition aggravated [Recovering/Resolving]
  - Benign familial pemphigus [Recovering/Resolving]
